FAERS Safety Report 25814459 (Version 2)
Quarter: 2025Q4

REPORT INFORMATION
  Report Type: Spontaneous
  Country: JP (occurrence: JP)
  Receive Date: 20250917
  Receipt Date: 20251029
  Transmission Date: 20260117
  Serious: Yes (Hospitalization)
  Sender: NOVO NORDISK
  Company Number: JP-NOVOPROD-1513941

PATIENT
  Age: 91 Year
  Sex: Female

DRUGS (1)
  1. TRESIBA [Suspect]
     Active Substance: INSULIN DEGLUDEC
     Indication: Type 2 diabetes mellitus
     Dosage: UNK
     Route: 058

REACTIONS (3)
  - Pneumonia [Unknown]
  - Urinary tract infection [Unknown]
  - Immobilisation syndrome [Unknown]

NARRATIVE: CASE EVENT DATE: 20250702
